FAERS Safety Report 9642861 (Version 2)
Quarter: 2014Q1

REPORT INFORMATION
  Report Type: Spontaneous
  Country: US (occurrence: US)
  Receive Date: 20131024
  Receipt Date: 20140116
  Transmission Date: 20141002
  Serious: Yes (Hospitalization, Other)
  Sender: FDA-Public Use
  Company Number: US-ASTELLAS-2013US010949

PATIENT
  Age: 66 Year
  Sex: Female
  Weight: 86 kg

DRUGS (1)
  1. PROGRAF [Suspect]
     Indication: RENAL TRANSPLANT
     Dosage: 5 MG, BID
     Route: 048
     Dates: start: 20090903

REACTIONS (11)
  - Nephrolithiasis [Unknown]
  - Urinary tract infection [Unknown]
  - Escherichia sepsis [Unknown]
  - Infection [Unknown]
  - Transplant rejection [Unknown]
  - Weight decreased [Unknown]
  - Gait disturbance [Unknown]
  - Fracture [Unknown]
  - Confusional state [Unknown]
  - Fall [Unknown]
  - Back pain [Unknown]
